FAERS Safety Report 15600414 (Version 1)
Quarter: 2018Q4

REPORT INFORMATION
  Report Type: Spontaneous
  Country: NL (occurrence: NL)
  Receive Date: 20181109
  Receipt Date: 20181109
  Transmission Date: 20190205
  Serious: Yes (Other)
  Sender: FDA-Public Use
  Company Number: NL-TEVA-2018-NL-973739

PATIENT
  Age: 11 Year
  Sex: Male
  Weight: 30 kg

DRUGS (3)
  1. FLOXAPEN (FLUCLOXACILLINE) POEDER INJECTIEVLOEISTOF, 500 MG (MILLIGRAM [Interacting]
     Active Substance: FLUCLOXACILLIN
     Indication: URINARY TRACT INFECTION
     Dosage: 500 MG CAPSULE EVERY 8 HOURS
     Route: 065
     Dates: start: 20180914, end: 20180924
  2. TACROLIMUS. [Suspect]
     Active Substance: TACROLIMUS
     Indication: PROPHYLAXIS AGAINST TRANSPLANT REJECTION
     Dosage: 2 DD 1.5 MG (AIM 3-5 UG/L)
     Route: 065
     Dates: start: 20180712
  3. EVEROLIMUS. [Interacting]
     Active Substance: EVEROLIMUS
     Indication: PROPHYLAXIS AGAINST TRANSPLANT REJECTION
     Dosage: 2 DD 1.75 MG (AIM 4-6 UG/L)
     Route: 065
     Dates: start: 20180712

REACTIONS (2)
  - Drug interaction [Recovered/Resolved]
  - Immunosuppressant drug level decreased [Recovered/Resolved]

NARRATIVE: CASE EVENT DATE: 20180917
